FAERS Safety Report 20938405 (Version 1)
Quarter: 2022Q2

REPORT INFORMATION
  Report Type: Spontaneous
  Country: US (occurrence: US)
  Receive Date: 20220609
  Receipt Date: 20220609
  Transmission Date: 20220720
  Serious: Yes (Hospitalization, Disabling)
  Sender: FDA-Public Use
  Company Number: US-SA-SAC20220606001069

PATIENT
  Age: 72 Year
  Sex: Female

DRUGS (1)
  1. AUBAGIO [Suspect]
     Active Substance: TERIFLUNOMIDE
     Indication: Multiple sclerosis
     Dosage: 14 MG, QD
     Route: 048

REACTIONS (5)
  - Gait inability [Unknown]
  - Condition aggravated [Unknown]
  - Influenza [Unknown]
  - Hepatic enzyme increased [Unknown]
  - Urinary tract infection [Unknown]
